FAERS Safety Report 9343179 (Version 1)
Quarter: 2013Q2

REPORT INFORMATION
  Report Type: Spontaneous
  Country: FR (occurrence: FR)
  Receive Date: 20130611
  Receipt Date: 20130611
  Transmission Date: 20140414
  Serious: Yes (Hospitalization)
  Sender: FDA-Public Use
  Company Number: FR-ASTRAZENECA-2013SE40281

PATIENT
  Age: 23115 Day
  Sex: Female
  Weight: 65 kg

DRUGS (13)
  1. INEXIUM [Suspect]
     Route: 042
     Dates: start: 20130226, end: 20130303
  2. TERALITHE [Concomitant]
  3. IMOVANE [Concomitant]
  4. STILNOX [Concomitant]
  5. METHOTREXATE [Concomitant]
     Dates: end: 20130221
  6. SPASFON [Concomitant]
     Dates: start: 20130223
  7. ANTALGIC [Concomitant]
     Dates: start: 20130223
  8. ROCEPHIN [Concomitant]
  9. GENTAMYCINE [Concomitant]
     Dates: end: 20130301
  10. CLAFORAN [Concomitant]
     Dates: start: 20130226, end: 20130301
  11. SPECIAFOLDINE [Concomitant]
  12. ACTRAPID [Concomitant]
     Dosage: 100 IU/ML, FOUR INJECTIONS PER DAY
     Route: 058
     Dates: start: 20130228
  13. CLAMOXYL [Concomitant]
     Dates: start: 20130301

REACTIONS (2)
  - Conjunctival haemorrhage [Recovered/Resolved]
  - Thrombocytopenia [Recovered/Resolved]
